FAERS Safety Report 9719829 (Version 2)
Quarter: 2014Q1

REPORT INFORMATION
  Report Type: Spontaneous
  Country: US (occurrence: US)
  Receive Date: 20131128
  Receipt Date: 20140114
  Transmission Date: 20141002
  Serious: No
  Sender: FDA-Public Use
  Company Number: US-009507513-1311USA011508

PATIENT
  Age: 26 Year
  Sex: Female
  Weight: 73.47 kg

DRUGS (5)
  1. NEXPLANON [Suspect]
     Indication: CONTRACEPTION
     Dosage: UNK; STANDARD DOSE
     Route: 058
     Dates: start: 20130731, end: 20131121
  2. LEXAPRO [Concomitant]
  3. VALIUM [Concomitant]
  4. DIAZEPAM [Concomitant]
  5. ZYRTEC [Concomitant]

REACTIONS (1)
  - Weight increased [Recovering/Resolving]
